FAERS Safety Report 4442950-6 (Version None)
Quarter: 2004Q3

REPORT INFORMATION
  Report Type: 
  Country: None (occurrence: None)
  Receive Date: 20040907
  Receipt Date: 20040907
  Transmission Date: 20050211
  Serious: Yes (Hospitalization)
  Sender: FDA-Public Use
  Company Number: None

PATIENT
  Age: 91 Year
  Sex: Female
  Weight: 76.6579 kg

DRUGS (3)
  1. ZITHROMAX [Suspect]
     Indication: RESPIRATORY TRACT INFECTION
     Dosage: SEE IMAGE
     Route: 048
     Dates: start: 20040827, end: 20040831
  2. ENTEX CAP [Concomitant]
  3. ALBUTEROL [Concomitant]

REACTIONS (3)
  - HEARING IMPAIRED [None]
  - MALAISE [None]
  - VISUAL DISTURBANCE [None]
